FAERS Safety Report 14895790 (Version 3)
Quarter: 2018Q4

REPORT INFORMATION
  Report Type: Spontaneous
  Country: BR (occurrence: BR)
  Receive Date: 20180515
  Receipt Date: 20181109
  Transmission Date: 20190204
  Serious: Yes (Hospitalization, Other)
  Sender: FDA-Public Use
  Company Number: BR-B.I. PHARMACEUTICALS,INC./RIDGEFIELD-2018-BI-025949

PATIENT
  Age: 87 Year
  Sex: Female

DRUGS (1)
  1. PRADAXA [Suspect]
     Active Substance: DABIGATRAN ETEXILATE MESYLATE
     Indication: ATRIAL FIBRILLATION
     Route: 048

REACTIONS (9)
  - Subarachnoid haemorrhage [Recovered/Resolved]
  - Haemorrhage [Unknown]
  - Head injury [Unknown]
  - Haemorrhage intracranial [Unknown]
  - Subdural haematoma [Unknown]
  - Confusional state [Recovered/Resolved]
  - Fall [Unknown]
  - Somnolence [Recovered/Resolved]
  - Adverse drug reaction [Unknown]
